FAERS Safety Report 17193532 (Version 1)
Quarter: 2019Q4

REPORT INFORMATION
  Report Type: Report from Study
  Country: None (occurrence: FR)
  Receive Date: 20191223
  Receipt Date: 20191223
  Transmission Date: 20200122
  Serious: Yes (Other)
  Sender: FDA-Public Use
  Company Number: FR-BAUSCH-BL-2019-066030

PATIENT
  Age: 55 Year
  Sex: Female

DRUGS (10)
  1. DEXAMETHASONE. [Suspect]
     Active Substance: DEXAMETHASONE
     Indication: HAEMOLYTIC ANAEMIA
     Dosage: DISCONTINUED;POSTPONEMENT; MAINTENANCE DOSE
     Route: 048
  2. PREDNISONE. [Concomitant]
     Active Substance: PREDNISONE
     Dosage: CONCOMITANT THERAPY
     Route: 065
  3. HYDROXYCHLOROQUINE [Concomitant]
     Active Substance: HYDROXYCHLOROQUINE
     Indication: PRODUCT USED FOR UNKNOWN INDICATION
  4. DEXAMETHASONE. [Suspect]
     Active Substance: DEXAMETHASONE
     Indication: OFF LABEL USE
     Dosage: MAINTENANCE DOSE
     Route: 048
  5. BORTEZOMIB. [Suspect]
     Active Substance: BORTEZOMIB
     Indication: OFF LABEL USE
     Dosage: MAINTENANCE DOSE; DISCONTINUED; POSTPONEMENT
     Route: 065
  6. BORTEZOMIB. [Suspect]
     Active Substance: BORTEZOMIB
     Dosage: MAINTENANCE DOSE; RESTARTED
     Route: 065
  7. PREDNISONE. [Concomitant]
     Active Substance: PREDNISONE
     Indication: HAEMOLYTIC ANAEMIA
     Dosage: PRIOR THERAPY
  8. DEXAMETHASONE. [Concomitant]
     Active Substance: DEXAMETHASONE
     Indication: HAEMOLYTIC ANAEMIA
     Dosage: CYCLE4,BTZ/DEX WITHDRAWAL; WEEKLY; ON DAYS 1, 4, 8 AND 11
     Route: 048
  9. BORTEZOMIB. [Suspect]
     Active Substance: BORTEZOMIB
     Indication: HAEMOLYTIC ANAEMIA
     Dosage: CYCLE4,BTZ/DEX WITHDRAWAL; ON DAYS 1, 4, 8 AND 11; INDUCTION REGIMEN
     Route: 065
  10. DEXAMETHASONE. [Concomitant]
     Active Substance: DEXAMETHASONE
     Indication: OFF LABEL USE

REACTIONS (2)
  - Off label use [Unknown]
  - Thrombocytopenia [Unknown]
